FAERS Safety Report 9859758 (Version 1)
Quarter: 2014Q1

REPORT INFORMATION
  Report Type: Report from Study
  Country: US (occurrence: US)
  Receive Date: 20140131
  Receipt Date: 20140131
  Transmission Date: 20141002
  Serious: Yes (Hospitalization)
  Sender: FDA-Public Use
  Company Number: PHHY2014US010274

PATIENT
  Age: 67 Year
  Sex: Male

DRUGS (18)
  1. OXALIPLATIN [Suspect]
     Indication: COLORECTAL CANCER METASTATIC
     Dosage: 186 MG, DAILY
     Route: 042
     Dates: start: 20120724
  2. OXALIPLATIN [Suspect]
     Route: 042
     Dates: start: 20120925
  3. 5-FLUOROURACIL [Suspect]
     Indication: COLORECTAL CANCER METASTATIC
     Dosage: 6132 MG, DAILY
     Route: 042
     Dates: start: 20120724
  4. 5-FLUOROURACIL [Suspect]
     Route: 042
     Dates: start: 20120925
  5. LEUCOVORIN CALCIUM [Suspect]
     Indication: COLORECTAL CANCER METASTATIC
     Dosage: 876 MG, DAILY
     Route: 042
     Dates: start: 20120724
  6. LEUCOVORIN CALCIUM [Suspect]
     Dates: start: 20120925
  7. BEVACIZUMAB [Suspect]
     Indication: COLORECTAL CANCER METASTATIC
     Dosage: 495 MG, DAILY
     Route: 042
     Dates: start: 20120724
  8. BEVACIZUMAB [Suspect]
     Route: 042
     Dates: start: 20120911
  9. PLACEBO [Suspect]
     Route: 042
  10. NORVASC [Concomitant]
     Indication: HYPERTENSION
     Dosage: 10 MG, QD
     Route: 048
     Dates: start: 199708
  11. CRESTOR [Concomitant]
     Indication: HYPERCHOLESTEROLAEMIA
     Dosage: 5 MG, DAILY
     Dates: start: 201205
  12. SIMVASTATIN [Concomitant]
     Indication: HYPERCHOLESTEROLAEMIA
     Dosage: 40 MG, QD
     Route: 048
     Dates: start: 201205
  13. CARDURA [Concomitant]
     Indication: BENIGN PROSTATIC HYPERPLASIA
     Dosage: 2 MG, QD
     Route: 048
     Dates: start: 199708
  14. FLOMAX//TAMSULOSIN HYDROCHLORIDE [Concomitant]
     Indication: BENIGN PROSTATIC HYPERPLASIA
     Dosage: 0.4 MG, QD
     Route: 048
     Dates: start: 201205
  15. SYNTHROID [Concomitant]
     Dosage: 44 MG, UNK
     Dates: start: 200901
  16. LASIX [Concomitant]
     Dosage: 20 MG, UNK
     Dates: start: 20130227
  17. CITALOPRAM [Concomitant]
     Indication: DEPRESSION
     Dosage: 30 MG, UNK
     Dates: start: 20121231
  18. COUMADIN//WARFARIN SODIUM [Concomitant]
     Indication: PULMONARY EMBOLISM
     Dosage: 5 MG, UNK
     Dates: start: 20120921

REACTIONS (9)
  - Gastrointestinal perforation [Unknown]
  - Diverticulitis [Recovered/Resolved]
  - Colitis [Unknown]
  - Abdominal pain lower [Unknown]
  - Haematocrit decreased [Unknown]
  - Blood creatinine increased [Unknown]
  - White blood cell count decreased [Unknown]
  - Haemoglobin decreased [Unknown]
  - Neutrophil count decreased [Unknown]
